FAERS Safety Report 4584485-6 (Version None)
Quarter: 2005Q1

REPORT INFORMATION
  Report Type: 
  Country: None (occurrence: None)
  Receive Date: 20050125
  Receipt Date: 20041108
  Transmission Date: 20050727
  Serious: No
  Sender: FDA-Public Use
  Company Number: USA041183472

PATIENT
  Age: 71 Year
  Sex: Female
  Weight: 75 kg

DRUGS (3)
  1. FORTEO [Suspect]
     Indication: OSTEOPOROSIS
     Dosage: 20 UG/1 DAY
     Dates: start: 20041102
  2. CALCIUM AND VITAMIN D [Concomitant]
  3. HYDROCODONE [Concomitant]

REACTIONS (2)
  - ARTHRALGIA [None]
  - INFLUENZA LIKE ILLNESS [None]
